FAERS Safety Report 11415283 (Version 2)
Quarter: 2015Q3

REPORT INFORMATION
  Report Type: Spontaneous
  Country: IT (occurrence: IT)
  Receive Date: 20150825
  Receipt Date: 20150908
  Transmission Date: 20151125
  Serious: Yes (Hospitalization)
  Sender: FDA-Public Use
  Company Number: IT-ROCHE-1624621

PATIENT
  Age: 41 Year
  Sex: Female

DRUGS (5)
  1. SERTRALINE [Suspect]
     Active Substance: SERTRALINE HYDROCHLORIDE
     Indication: SUICIDE ATTEMPT
     Route: 048
     Dates: start: 20150713, end: 20150713
  2. PROZIN (ITALY) [Suspect]
     Active Substance: CHLORPROMAZINE HYDROCHLORIDE
     Indication: SUICIDE ATTEMPT
     Dosage: ^25 MG COATED TABLETS^ 25 TABLETS
     Route: 048
     Dates: start: 20150713, end: 20150713
  3. BROMAZEPAM [Concomitant]
     Active Substance: BROMAZEPAM
  4. METHADONE HYDROCHLORIDE. [Concomitant]
     Active Substance: METHADONE HYDROCHLORIDE
  5. VALIUM [Suspect]
     Active Substance: DIAZEPAM
     Indication: SUICIDE ATTEMPT
     Dosage: ^5 MG/ML ORAL DROPS, SOLUTION^ 20 ML BOTTLE
     Route: 049
     Dates: start: 20150713, end: 20150713

REACTIONS (2)
  - Sopor [Recovering/Resolving]
  - Drug abuse [Unknown]

NARRATIVE: CASE EVENT DATE: 20150713
